FAERS Safety Report 10425118 (Version 4)
Quarter: 2014Q4

REPORT INFORMATION
  Report Type: Spontaneous
  Country: JP (occurrence: JP)
  Receive Date: 20140902
  Receipt Date: 20141009
  Transmission Date: 20150528
  Serious: Yes (Death, Hospitalization, Other)
  Sender: FDA-Public Use
  Company Number: JP-GLAXOSMITHKLINE-B1028385A

PATIENT
  Age: 71 Year
  Sex: Male
  Weight: 64 kg

DRUGS (2)
  1. PAZOPANIB [Suspect]
     Active Substance: PAZOPANIB
     Indication: RENAL CELL CARCINOMA
     Route: 048
     Dates: start: 20140723, end: 20140825
  2. AMLODIPINE [Concomitant]
     Active Substance: AMLODIPINE BESYLATE
     Indication: HYPERTENSION
     Route: 048

REACTIONS (7)
  - Decreased appetite [Unknown]
  - Coma hepatic [Unknown]
  - Abdominal pain [Unknown]
  - Nausea [Unknown]
  - Jaundice [Unknown]
  - Malaise [Unknown]
  - Hepatitis fulminant [Fatal]

NARRATIVE: CASE EVENT DATE: 20140817
